FAERS Safety Report 4279555-6 (Version None)
Quarter: 2004Q1

REPORT INFORMATION
  Report Type: 
  Country: None (occurrence: None)
  Receive Date: 20040123
  Receipt Date: 20040113
  Transmission Date: 20041129
  Serious: Yes (Hospitalization)
  Sender: FDA-Public Use
  Company Number: FR-JNJFOC-20040102198

PATIENT
  Age: 44 Year
  Sex: Female

DRUGS (1)
  1. ZALDIAR (TRAMADOL/ APAP) TABLETS [Suspect]
     Dosage: 2 DOSE (S), 1 IN 1 DAY, ORAL
     Route: 048
     Dates: start: 20030926, end: 20030926

REACTIONS (3)
  - BRAIN OEDEMA [None]
  - HYPERTENSION [None]
  - VOMITING [None]
